FAERS Safety Report 13673805 (Version 1)
Quarter: 2017Q2

REPORT INFORMATION
  Report Type: Spontaneous
  Country: SE (occurrence: SE)
  Receive Date: 20170621
  Receipt Date: 20170621
  Transmission Date: 20170830
  Serious: Yes (Death, Hospitalization)
  Sender: FDA-Public Use
  Company Number: SE-AMGEN-SWESP2016157797

PATIENT
  Age: 35 Year
  Sex: Female

DRUGS (7)
  1. XGEVA [Suspect]
     Active Substance: DENOSUMAB
     Indication: METASTASES TO BONE
     Dosage: UNK
     Route: 058
     Dates: start: 20161013
  2. XGEVA [Suspect]
     Active Substance: DENOSUMAB
     Indication: HYPERCALCAEMIA
  3. KALCIPOS [Concomitant]
     Active Substance: CALCIUM CARBONATE
     Dosage: UNK UNK, QD
  4. ZOLEDRONIC ACID. [Suspect]
     Active Substance: ZOLEDRONIC ACID
     Indication: METASTASES TO BONE
  5. ZOLEDRONIC ACID. [Suspect]
     Active Substance: ZOLEDRONIC ACID
     Indication: HYPERCALCAEMIA
     Dosage: UNK
     Route: 065
     Dates: start: 2015, end: 20160915
  6. VITAMIN D [Concomitant]
     Active Substance: CHOLECALCIFEROL
  7. XGEVA [Suspect]
     Active Substance: DENOSUMAB
     Indication: BREAST CANCER

REACTIONS (2)
  - Breast cancer [Fatal]
  - Hypocalcaemia [Unknown]

NARRATIVE: CASE EVENT DATE: 20161017
